FAERS Safety Report 8852987 (Version 1)
Quarter: 2012Q4

REPORT INFORMATION
  Report Type: 
  Country: CA (occurrence: CA)
  Receive Date: 20121022
  Receipt Date: 20121022
  Transmission Date: 20130627
  Serious: Yes (Other)
  Sender: FDA-Public Use
  Company Number: CHPA2012CA021780

PATIENT
  Age: 53 Year
  Sex: Female

DRUGS (1)
  1. NEOCITRAN NIGHTTIME TOTAL SYMPTOM RELIEF [Suspect]
     Indication: NASOPHARYNGITIS
     Dosage: Unk, PRN
     Route: 048

REACTIONS (3)
  - Crohn^s disease [Not Recovered/Not Resolved]
  - Abdominal pain upper [Not Recovered/Not Resolved]
  - Therapeutic response unexpected [Unknown]
